FAERS Safety Report 5777389-4 (Version None)
Quarter: 2008Q2

REPORT INFORMATION
  Report Type: 
  Country: None (occurrence: None)
  Receive Date: 20080618
  Receipt Date: 20080611
  Transmission Date: 20081010
  Serious: No
  Sender: FDA-Public Use
  Company Number: US-JNJFOC-20080603379

PATIENT
  Age: 5 Decade
  Sex: Male

DRUGS (2)
  1. INVEGA [Suspect]
     Indication: SCHIZOPHRENIA
     Route: 048
     Dates: start: 20080501, end: 20080601
  2. HALDOL [Suspect]
     Indication: SCHIZOPHRENIA

REACTIONS (2)
  - FLIGHT OF IDEAS [None]
  - OBESITY [None]
